FAERS Safety Report 6121286-1 (Version None)
Quarter: 2009Q1

REPORT INFORMATION
  Report Type: 
  Country: None (occurrence: None)
  Receive Date: 20090312
  Receipt Date: 20090312
  Transmission Date: 20090719
  Serious: Yes (Disabling)
  Sender: FDA-Public Use
  Company Number: None

PATIENT
  Age: 59 Year
  Sex: Female
  Weight: 72.5755 kg

DRUGS (1)
  1. BONIVA [Suspect]
     Indication: OSTEOPOROSIS PROPHYLAXIS
     Dosage: 1 TABLET ONCE A MONTH  (ONE MONTHLY DOSE)
     Dates: start: 20080915, end: 20081015

REACTIONS (3)
  - INFLUENZA LIKE ILLNESS [None]
  - OESOPHAGEAL SPASM [None]
  - THROAT IRRITATION [None]
